FAERS Safety Report 7005419-0 (Version None)
Quarter: 2010Q3

REPORT INFORMATION
  Report Type: 
  Country: None (occurrence: None)
  Receive Date: 20100921
  Receipt Date: 20100910
  Transmission Date: 20110219
  Serious: Yes (Hospitalization, Other)
  Sender: FDA-Public Use
  Company Number: US-JNJFOC-20100601579

PATIENT
  Sex: Female
  Weight: 98.88 kg

DRUGS (1)
  1. REMICADE [Suspect]
     Indication: CROHN'S DISEASE
     Route: 042

REACTIONS (6)
  - ABASIA [None]
  - ABDOMINAL PAIN [None]
  - ARTHRALGIA [None]
  - INFUSION RELATED REACTION [None]
  - PAIN [None]
  - RASH [None]
